FAERS Safety Report 23755265 (Version 4)
Quarter: 2024Q2

REPORT INFORMATION
  Report Type: Report from Study
  Country: US (occurrence: US)
  Receive Date: 20240418
  Receipt Date: 20240531
  Transmission Date: 20240716
  Serious: No
  Sender: FDA-Public Use
  Company Number: US-AMGEN-USASP2024076703

PATIENT
  Age: 29 Year
  Sex: Female

DRUGS (5)
  1. AIMOVIG [Suspect]
     Active Substance: ERENUMAB-AOOE
     Indication: Migraine
     Dosage: 140 MILLIGRAM, QMO
     Route: 058
  2. AIMOVIG [Suspect]
     Active Substance: ERENUMAB-AOOE
     Indication: Hypoaesthesia
  3. AIMOVIG [Suspect]
     Active Substance: ERENUMAB-AOOE
     Indication: Paraesthesia
  4. AIMOVIG [Suspect]
     Active Substance: ERENUMAB-AOOE
     Indication: Visual impairment
  5. AIMOVIG [Suspect]
     Active Substance: ERENUMAB-AOOE
     Indication: Mass

REACTIONS (5)
  - Device difficult to use [Unknown]
  - Migraine [Unknown]
  - Wrong technique in product usage process [Unknown]
  - Drug dose omission by device [Unknown]
  - Product dispensing error [Unknown]

NARRATIVE: CASE EVENT DATE: 20240401
